FAERS Safety Report 5167443-2 (Version None)
Quarter: 2006Q4

REPORT INFORMATION
  Report Type: 
  Country: None (occurrence: None)
  Receive Date: 20061207
  Receipt Date: 20060614
  Transmission Date: 20070319
  Serious: Yes (Hospitalization)
  Sender: FDA-Public Use
  Company Number: AU-MERCK-0606AUS00053

PATIENT
  Age: 52 Year
  Sex: Female

DRUGS (2)
  1. ZOCOR [Suspect]
     Indication: METABOLIC DISORDER
     Route: 048
     Dates: end: 20050208
  2. SERTRALINE HYDROCHLORIDE [Suspect]
     Indication: DEPRESSION
     Route: 048
     Dates: start: 20041028, end: 20050208

REACTIONS (3)
  - BLOOD AMYLASE INCREASED [None]
  - CHEST PAIN [None]
  - PANCREATITIS [None]
